FAERS Safety Report 8346756-7 (Version None)
Quarter: 2012Q2

REPORT INFORMATION
  Report Type: 
  Country: None (occurrence: None)
  Receive Date: 20120508
  Receipt Date: 20120508
  Transmission Date: 20120825
  Serious: Yes (Other)
  Sender: FDA-Public Use
  Company Number: None

PATIENT
  Sex: Female

DRUGS (1)
  1. FORTEO [Suspect]
     Dosage: 20MCG DAILY SQ
     Route: 058
     Dates: start: 20120106

REACTIONS (4)
  - MUSCULOSKELETAL STIFFNESS [None]
  - CHEST DISCOMFORT [None]
  - NECK PAIN [None]
  - DIZZINESS [None]
